FAERS Safety Report 4668794-8 (Version None)
Quarter: 2005Q2

REPORT INFORMATION
  Report Type: 
  Country: None (occurrence: None)
  Receive Date: 20050519
  Receipt Date: 20050504
  Transmission Date: 20051028
  Serious: Yes (Hospitalization)
  Sender: FDA-Public Use
  Company Number: 214475

PATIENT
  Age: 50 Year
  Sex: Male
  Weight: 79 kg

DRUGS (6)
  1. AVASTIN [Suspect]
     Indication: COLON CANCER
     Dosage: 592 MG, Q3W, INTRAVENOUS
     Route: 042
     Dates: start: 20050310
  2. CAPECITABINE (CAPECITABINE) [Suspect]
     Indication: COLON CANCER
     Dosage: 500 MG, QD, ORAL
     Route: 048
     Dates: start: 20050310, end: 20050425
  3. OXALIPLATIN (OXALIPLATIN) [Suspect]
     Indication: COLON CANCER
     Dosage: 260 MG, Q3W, INTRAVENOUS
     Route: 042
     Dates: start: 20050310, end: 20050425
  4. EPIVAL (DIVALPROEX SODIUM) [Concomitant]
  5. LAMICTAL [Concomitant]
  6. LOSEC (OMEPRAZOLE) [Concomitant]

REACTIONS (4)
  - GENERAL PHYSICAL HEALTH DETERIORATION [None]
  - NAUSEA [None]
  - PORTAL VEIN THROMBOSIS [None]
  - VOMITING [None]
